FAERS Safety Report 14303721 (Version 1)
Quarter: 2017Q4

REPORT INFORMATION
  Report Type: Spontaneous
  Country: DE (occurrence: DE)
  Receive Date: 20171219
  Receipt Date: 20171219
  Transmission Date: 20180321
  Serious: Yes (Other)
  Sender: FDA-Public Use
  Company Number: DE-OTSUKA-20190906

PATIENT
  Age: 67 Year
  Sex: Male

DRUGS (2)
  1. CLOZAPINE. [Concomitant]
     Active Substance: CLOZAPINE
     Indication: ILLNESS ANXIETY DISORDER
     Dosage: UNK
     Route: 065
     Dates: start: 20121130
  2. ABILIFY [Suspect]
     Active Substance: ARIPIPRAZOLE
     Indication: DELUSION
     Dosage: UNK
     Route: 065
     Dates: start: 20121211

REACTIONS (2)
  - Delirium [Recovered/Resolved]
  - Off label use [Unknown]

NARRATIVE: CASE EVENT DATE: 20121217
